FAERS Safety Report 10339946 (Version 2)
Quarter: 2014Q3

REPORT INFORMATION
  Report Type: Spontaneous
  Country: GB (occurrence: GB)
  Receive Date: 20140724
  Receipt Date: 20140724
  Transmission Date: 20150326
  Serious: Yes (Hospitalization, Other)
  Sender: FDA-Public Use
  Company Number: GB-BAXTER-2014BAX028439

PATIENT
  Age: 23 Year
  Sex: Male
  Weight: 82.9 kg

DRUGS (7)
  1. MESNA. [Suspect]
     Active Substance: MESNA
     Indication: OSTEOSARCOMA
     Route: 042
     Dates: start: 20140317
  2. MESNA. [Suspect]
     Active Substance: MESNA
     Route: 042
     Dates: end: 20140619
  3. METHOTREXATE [Suspect]
     Active Substance: METHOTREXATE
     Indication: PRODUCT USED FOR UNKNOWN INDICATION
     Route: 042
     Dates: start: 20140317, end: 20140527
  4. METHOTREXATE [Suspect]
     Active Substance: METHOTREXATE
     Route: 042
     Dates: start: 20140317, end: 20140527
  5. IFOSFAMIDE. [Suspect]
     Active Substance: IFOSFAMIDE
     Route: 042
     Dates: end: 20140619
  6. SODIUM CHLORIDE INTRAVENOUS INFUSION BP 0.9%W/V [Suspect]
     Active Substance: SODIUM CHLORIDE
     Indication: PRODUCT USED FOR UNKNOWN INDICATION
     Route: 042
     Dates: start: 20140317, end: 20140527
  7. IFOSFAMIDE. [Suspect]
     Active Substance: IFOSFAMIDE
     Indication: OSTEOSARCOMA
     Route: 042
     Dates: start: 20140317, end: 20140619

REACTIONS (3)
  - Drug level increased [Recovering/Resolving]
  - Renal impairment [Recovering/Resolving]
  - Renal function test abnormal [Recovering/Resolving]

NARRATIVE: CASE EVENT DATE: 20140526
